FAERS Safety Report 8918843 (Version 1)
Quarter: 2012Q4

REPORT INFORMATION
  Report Type: Spontaneous
  Country: US (occurrence: None)
  Receive Date: 20121115
  Receipt Date: 20121115
  Transmission Date: 20130627
  Serious: No
  Sender: FDA-Public Use
  Company Number: None

PATIENT
  Sex: Male
  Weight: 93 kg

DRUGS (4)
  1. CYCLOPHOSPHAMIDE [Suspect]
     Dates: end: 20020923
  2. DOXORUBICIN HYDROCHLORIDE [Suspect]
     Dates: end: 20020923
  3. PREDNISONE [Suspect]
     Dates: end: 20020927
  4. VINCRISTINE SULFATE [Suspect]
     Dates: end: 20020923

REACTIONS (1)
  - Acute myeloid leukaemia [None]
